FAERS Safety Report 20922159 (Version 1)
Quarter: 2022Q2

REPORT INFORMATION
  Report Type: Spontaneous
  Country: US (occurrence: US)
  Receive Date: 20220607
  Receipt Date: 20220607
  Transmission Date: 20220721
  Serious: No
  Sender: FDA-Public Use
  Company Number: US-STRIDES ARCOLAB LIMITED-2022SP005430

PATIENT
  Age: 29 Year
  Sex: Female

DRUGS (3)
  1. PREDNISOLONE [Suspect]
     Active Substance: PREDNISOLONE
     Indication: Granulomatous dermatitis
     Dosage: UNK
     Route: 048
  2. TACROLIMUS [Suspect]
     Active Substance: TACROLIMUS
     Indication: Granulomatous dermatitis
     Dosage: UNK
     Route: 065
  3. FLUOROURACIL [Concomitant]
     Active Substance: FLUOROURACIL
     Indication: Granulomatous dermatitis
     Dosage: UNK
     Route: 065

REACTIONS (4)
  - Disturbance in attention [Unknown]
  - Fatigue [Unknown]
  - Weight increased [Unknown]
  - Drug ineffective for unapproved indication [Unknown]
